FAERS Safety Report 4986593-4 (Version None)
Quarter: 2006Q2

REPORT INFORMATION
  Report Type: 
  Country: None (occurrence: None)
  Receive Date: 20060424
  Receipt Date: 20060414
  Transmission Date: 20061013
  Serious: Yes (Other)
  Sender: FDA-Public Use
  Company Number: HQWYE834614APR06

PATIENT
  Sex: Female

DRUGS (3)
  1. PREMARIN [Suspect]
     Dosage: ^HIGH DOSE^, ORAL
     Route: 048
  2. PREMARIN [Suspect]
     Dosage: VAGINAL
     Route: 067
  3. ESTROGEN REPLACEMENT THERAPY (ESTROGEN REPLACEMENT THERAPY,) [Suspect]

REACTIONS (4)
  - CERVIX CARCINOMA [None]
  - FEELING ABNORMAL [None]
  - UTERINE CANCER [None]
  - WEIGHT INCREASED [None]
